FAERS Safety Report 8872184 (Version 2)
Quarter: 2013Q2

REPORT INFORMATION
  Report Type: Spontaneous
  Country: FR (occurrence: FR)
  Receive Date: 20121030
  Receipt Date: 20130530
  Transmission Date: 20140414
  Serious: Yes (Hospitalization, Other)
  Sender: FDA-Public Use
  Company Number: FR-ROCHE-1148563

PATIENT
  Age: 66 Year
  Sex: Female

DRUGS (8)
  1. XOLAIR [Suspect]
     Indication: ASTHMA
     Route: 058
     Dates: start: 20120913
  2. AERIUS [Concomitant]
  3. INEXIUM [Concomitant]
  4. RHINOCORT [Concomitant]
  5. PAROXETINE [Concomitant]
  6. SINGULAIR [Concomitant]
  7. AUGMENTIN [Concomitant]
     Route: 065
     Dates: start: 20120913
  8. MUCOMYST [Concomitant]
     Route: 065
     Dates: start: 20120913

REACTIONS (10)
  - Bronchitis [Unknown]
  - Bronchospasm [Unknown]
  - Hypoxia [Unknown]
  - Productive cough [Unknown]
  - Gastroenteritis [Recovered/Resolved]
  - Asthma [Not Recovered/Not Resolved]
  - Hypotension [Recovered/Resolved]
  - Dehydration [Unknown]
  - Leukocytosis [Unknown]
  - Dyspnoea [Unknown]
